FAERS Safety Report 15703599 (Version 1)
Quarter: 2018Q4

REPORT INFORMATION
  Report Type: Spontaneous
  Country: US (occurrence: US)
  Receive Date: 20181210
  Receipt Date: 20181210
  Transmission Date: 20190205
  Serious: Yes (Disabling)
  Sender: FDA-Public Use
  Company Number: None

PATIENT
  Age: 80 Year
  Sex: Male
  Weight: 82.35 kg

DRUGS (15)
  1. LUPRON [Suspect]
     Active Substance: LEUPROLIDE ACETATE
     Indication: PROSTATE CANCER
     Dosage: ?          OTHER FREQUENCY:AT 3 MONTH INTERVA;?
     Route: 030
     Dates: start: 20160816
  2. VITAMIN D3 [Concomitant]
     Active Substance: CHOLECALCIFEROL
  3. COLACE [Concomitant]
     Active Substance: DOCUSATE SODIUM
  4. LANTUS [Concomitant]
     Active Substance: INSULIN GLARGINE
  5. LASIX [Concomitant]
     Active Substance: FUROSEMIDE
  6. SENNA [Concomitant]
     Active Substance: SENNA LEAF\SENNOSIDES\SENNOSIDES A AND B
  7. INSULIN [Concomitant]
     Active Substance: INSULIN NOS
  8. NOVOLOG [Concomitant]
     Active Substance: INSULIN ASPART
  9. PRILOSEC [Concomitant]
     Active Substance: OMEPRAZOLE MAGNESIUM
  10. NOVOFINE [Concomitant]
     Active Substance: INSULIN NOS
  11. PROSCAR [Suspect]
     Active Substance: FINASTERIDE
     Indication: PROSTATE CANCER
     Dosage: ?          QUANTITY:1 TABLET(S);?
     Route: 048
     Dates: start: 20160816, end: 20181129
  12. CONTOUR [Concomitant]
  13. LIPITOR [Concomitant]
     Active Substance: ATORVASTATIN CALCIUM
  14. FLOMAX [Concomitant]
     Active Substance: TAMSULOSIN HYDROCHLORIDE
  15. LISINOPRIL. [Concomitant]
     Active Substance: LISINOPRIL

REACTIONS (10)
  - Bladder squamous cell carcinoma stage unspecified [None]
  - Bone density decreased [None]
  - Osteonecrosis of jaw [None]
  - Bladder adenocarcinoma stage unspecified [None]
  - Bladder neck obstruction [None]
  - Inhibitory drug interaction [None]
  - Drug level increased [None]
  - Ureteric obstruction [None]
  - Gastrooesophageal reflux disease [None]
  - Micturition urgency [None]

NARRATIVE: CASE EVENT DATE: 20181129
